FAERS Safety Report 15678661 (Version 1)
Quarter: 2018Q4

REPORT INFORMATION
  Report Type: Spontaneous
  Country: US (occurrence: US)
  Receive Date: 20181130
  Receipt Date: 20181130
  Transmission Date: 20190205
  Serious: Yes (Hospitalization)
  Sender: FDA-Public Use
  Company Number: None

PATIENT
  Sex: Male

DRUGS (18)
  1. TASIGNA [Suspect]
     Active Substance: NILOTINIB
     Indication: CHRONIC MYELOID LEUKAEMIA
     Route: 048
  2. LEVOTHYROXIN TAB 88MCG [Concomitant]
     Dates: start: 20181115
  3. PREDNISONE TAB 10MG [Concomitant]
     Active Substance: PREDNISONE
     Dates: start: 20180920
  4. FAMCICLOVIR TAB 500MG [Concomitant]
     Dates: start: 20181123
  5. LEVOTHYROXIN TAB 100MCG [Concomitant]
     Dates: start: 20181115
  6. EZETIMBE TAB 10MG [Concomitant]
     Dates: start: 20181115
  7. CLOBETASOL SOL 0.05% [Concomitant]
     Dates: start: 20181022
  8. CLENPIQ SOL [Concomitant]
     Dates: start: 20181022
  9. PANTOPRAZOLE TAB 40MG [Concomitant]
     Dates: start: 20180918
  10. TESTOST CYP INJ 200MG/ML [Concomitant]
     Dates: start: 20181127
  11. PEG-3350/KCL SOL/SODIUM [Concomitant]
     Dates: start: 20181031
  12. TRIAMCINOLON CRE 0.1% [Concomitant]
     Dates: start: 20181022
  13. LEVOTHYROXIN TAB 25MCG [Concomitant]
     Dates: start: 20181123
  14. PEG-3350/KCL SOL/SODIUM [Concomitant]
     Dates: start: 20181107
  15. CLOPIDOGREL TAB 75MG [Concomitant]
     Dates: start: 20181115
  16. DILTIAZEM CAP 180MG ER [Concomitant]
     Dates: start: 20181115
  17. ASPIRIN 81 TAB 81MG EC [Concomitant]
     Dates: start: 20181115
  18. CHOLESTYRAM POW 4GM LITE [Concomitant]
     Dates: start: 20181001

REACTIONS (1)
  - Carotid artery stent insertion [None]
